FAERS Safety Report 9651130 (Version 6)
Quarter: 2014Q1

REPORT INFORMATION
  Report Type: Spontaneous
  Country: US (occurrence: US)
  Receive Date: 20131029
  Receipt Date: 20140131
  Transmission Date: 20141002
  Serious: Yes (Other)
  Sender: FDA-Public Use
  Company Number: US-PFIZER INC-2013306581

PATIENT
  Age: 62 Year
  Sex: Male
  Weight: 79.37 kg

DRUGS (13)
  1. SUTENT [Suspect]
     Indication: RENAL CELL CARCINOMA
     Dosage: 50 MG,  UNK
     Dates: start: 201208, end: 201210
  2. SUTENT [Suspect]
     Dosage: 37.5 MG, UNK
     Dates: start: 201302, end: 20130503
  3. SUTENT [Suspect]
     Dosage: 50 MG, DAILY 4 WEEKS
     Dates: start: 20130722
  4. SUTENT [Suspect]
     Dosage: 50 MG, 4 WEEKS ON 2 WEEKS OFF
     Dates: start: 20130810, end: 20131106
  5. SUTENT [Suspect]
     Dosage: 37.5 MG, CYCLIC (4 WEEKS ON AND 2 WEEKS OFF)
     Dates: start: 20131201, end: 20131228
  6. PREDNISONE [Concomitant]
     Dosage: UNK
  7. FLUDROCORTISONE [Concomitant]
     Dosage: UNK
  8. KEPPRA [Concomitant]
     Dosage: UNK
  9. LANSOPRAZOLE [Concomitant]
     Dosage: UNK
  10. LEVOTHYROXINE [Concomitant]
     Dosage: UNK
  11. TEMAZEPAM [Concomitant]
     Dosage: UNK
  12. EUCERIN CREME [Concomitant]
     Dosage: UNK, WITH UREA
  13. IMODIUM A-D [Concomitant]
     Dosage: UNK

REACTIONS (20)
  - Adrenal insufficiency [Unknown]
  - Deafness [Recovered/Resolved]
  - Disease progression [Unknown]
  - Renal cell carcinoma [Unknown]
  - Fatigue [Unknown]
  - Diarrhoea [Unknown]
  - Stomatitis [Unknown]
  - Rash macular [Unknown]
  - Dysgeusia [Unknown]
  - Decreased appetite [Not Recovered/Not Resolved]
  - Alopecia [Unknown]
  - Blood pressure increased [Unknown]
  - Headache [Unknown]
  - Palmar-plantar erythrodysaesthesia syndrome [Unknown]
  - Dry skin [Unknown]
  - Dry mouth [Unknown]
  - Nasopharyngitis [Unknown]
  - Dysphonia [Not Recovered/Not Resolved]
  - Weight decreased [Unknown]
  - Back pain [Unknown]
